FAERS Safety Report 5045274-1 (Version None)
Quarter: 2006Q3

REPORT INFORMATION
  Report Type: 
  Country: None (occurrence: None)
  Receive Date: 20060705
  Receipt Date: 20060614
  Transmission Date: 20061208
  Serious: Yes (Other)
  Sender: FDA-Public Use
  Company Number: US200606003441

PATIENT
  Age: 48 Year
  Sex: Male
  Weight: 72.6 kg

DRUGS (6)
  1. ZYPREXA [Suspect]
     Dosage: SEE IMAGE
     Dates: start: 19981016, end: 19990312
  2. ZYPREXA [Suspect]
     Dosage: SEE IMAGE
     Dates: start: 19990312, end: 20040321
  3. ZYPREXA [Suspect]
     Dosage: SEE IMAGE
     Dates: start: 20040331, end: 20040424
  4. ZYPREXA [Suspect]
     Dosage: SEE IMAGE
     Dates: start: 20040424
  5. SINEQUAN [Concomitant]
  6. RISPERDAL /SWE/ (RISPERIDONE) [Concomitant]

REACTIONS (8)
  - ASPARTATE AMINOTRANSFERASE INCREASED [None]
  - BLOOD ALKALINE PHOSPHATASE INCREASED [None]
  - BLOOD LACTATE DEHYDROGENASE INCREASED [None]
  - DIABETES MELLITUS [None]
  - PRESCRIBED OVERDOSE [None]
  - THROMBOCYTOPENIA [None]
  - WEIGHT DECREASED [None]
  - WEIGHT INCREASED [None]
